FAERS Safety Report 18055810 (Version 3)
Quarter: 2020Q3

REPORT INFORMATION
  Report Type: Spontaneous
  Country: US (occurrence: US)
  Receive Date: 20200722
  Receipt Date: 20200826
  Transmission Date: 20201103
  Serious: No
  Sender: FDA-Public Use
  Company Number: US-009507513-2007USA008253

PATIENT
  Age: 71 Year
  Sex: Female

DRUGS (1)
  1. ALBUTEROL SULFATE. [Suspect]
     Active Substance: ALBUTEROL SULFATE
     Indication: WHEEZING
     Dosage: ONE OR TWO PUFFS EVERY 6 HOURS AS NEEDED
     Dates: start: 20200720

REACTIONS (5)
  - Product use issue [Unknown]
  - Product prescribing issue [Unknown]
  - Product dose omission issue [Unknown]
  - Poor quality device used [Unknown]
  - Product quality issue [Unknown]

NARRATIVE: CASE EVENT DATE: 20200720
